FAERS Safety Report 5705914-8 (Version None)
Quarter: 2008Q2

REPORT INFORMATION
  Report Type: 
  Country: None (occurrence: None)
  Receive Date: 20080411
  Receipt Date: 20080407
  Transmission Date: 20081010
  Serious: Yes (Life-Threatening, Other)
  Sender: FDA-Public Use
  Company Number: 009-21880-07081730

PATIENT
  Age: 67 Year
  Sex: Female
  Weight: 76 kg

DRUGS (6)
  1. REVLIMID [Suspect]
     Indication: 5Q-SYNDROME
     Dosage: SEE IMAGE
     Route: 048
     Dates: start: 20070801, end: 20070801
  2. REVLIMID [Suspect]
     Indication: 5Q-SYNDROME
     Dosage: SEE IMAGE
     Route: 048
     Dates: start: 20070619
  3. ENOXAPARIN NATRIUM (ENOXAPARIN) [Concomitant]
  4. LMW HEPARIN (HEPARIN) [Concomitant]
  5. LOVENOX [Concomitant]
  6. EXJADE [Concomitant]

REACTIONS (4)
  - ANAEMIA HAEMOLYTIC AUTOIMMUNE [None]
  - CONDITION AGGRAVATED [None]
  - NEUTROPENIA [None]
  - THROMBOCYTOPENIA [None]
